FAERS Safety Report 8922779 (Version 2)
Quarter: 2014Q2

REPORT INFORMATION
  Report Type: Report from Study
  Country: MX (occurrence: MX)
  Receive Date: 20121123
  Receipt Date: 20140402
  Transmission Date: 20141212
  Serious: Yes (Other)
  Sender: FDA-Public Use
  Company Number: PHHY2012MX106226

PATIENT
  Age: 59 Year
  Sex: Female

DRUGS (5)
  1. ACLASTA [Suspect]
     Indication: OSTEOPOROSIS
     Dosage: 5 MG/100 ML, ONCE A YEAR
     Route: 042
     Dates: start: 20091016
  2. DOLAREN                            /01615701/ [Concomitant]
     Dosage: 2 UNK, DAILY
  3. ZALDIAR [Concomitant]
     Indication: PAIN
     Dosage: 1 DF, Q8H
  4. DYNASTAT [Concomitant]
     Indication: PAIN
     Dosage: 1 DF, DAILY
  5. CALTRATE D                         /00944201/ [Concomitant]
     Indication: BLOOD CALCIUM ABNORMAL
     Dosage: 1 DF, DAILY

REACTIONS (4)
  - Fall [Recovering/Resolving]
  - Spinal compression fracture [Recovering/Resolving]
  - Arthralgia [Not Recovered/Not Resolved]
  - Feeling abnormal [Recovered/Resolved]
